FAERS Safety Report 19448042 (Version 1)
Quarter: 2021Q2

REPORT INFORMATION
  Report Type: Spontaneous
  Country: US (occurrence: US)
  Receive Date: 20210622
  Receipt Date: 20210622
  Transmission Date: 20210717
  Serious: Yes (Other)
  Sender: FDA-Public Use
  Company Number: None

PATIENT
  Sex: Male

DRUGS (2)
  1. METFORMIN [Suspect]
     Active Substance: METFORMIN HYDROCHLORIDE
  2. GLIPIZIDE?METFORMIN 5MG/500MG TABS [Suspect]
     Active Substance: GLIPIZIDE\METFORMIN HYDROCHLORIDE

REACTIONS (2)
  - Headache [None]
  - Rash [None]
